FAERS Safety Report 21180173 (Version 4)
Quarter: 2023Q1

REPORT INFORMATION
  Report Type: Spontaneous
  Country: IT (occurrence: IT)
  Receive Date: 20220806
  Receipt Date: 20230302
  Transmission Date: 20230418
  Serious: Yes (Other)
  Sender: FDA-Public Use
  Company Number: IT-CELLTRION INC.-2022IT001386

PATIENT

DRUGS (13)
  1. INFLIXIMAB [Suspect]
     Active Substance: INFLIXIMAB
     Indication: Psoriasis
     Dosage: 5 MG/KG, EVERY 8 WEEKS
     Dates: start: 2006, end: 2015
  2. INFLIXIMAB [Suspect]
     Active Substance: INFLIXIMAB
     Indication: Psoriasis
  3. ADALIMUMAB [Suspect]
     Active Substance: ADALIMUMAB
     Indication: Psoriatic arthropathy
     Dosage: UNK
     Route: 065
  4. ADALIMUMAB [Suspect]
     Active Substance: ADALIMUMAB
     Indication: Psoriasis
     Dosage: 40 MG, EVERY 2 WEEKS
     Route: 058
  5. ADALIMUMAB [Suspect]
     Active Substance: ADALIMUMAB
     Dosage: 40 MG SUBCUTANEOUSLY EVERY TWO WEEKS/40 MILLIGRAM, BIWEEKLY
     Route: 058
     Dates: start: 201604
  6. FOLIC ACID [Suspect]
     Active Substance: FOLIC ACID
     Indication: Psoriasis
     Dosage: 5 MG
  7. FOLIC ACID [Suspect]
     Active Substance: FOLIC ACID
     Indication: Psoriasis
  8. METHOTREXATE [Suspect]
     Active Substance: METHOTREXATE
     Indication: Psoriasis
     Dosage: 15 MG, WEEKLY
     Dates: start: 2015
  9. METHOTREXATE [Suspect]
     Active Substance: METHOTREXATE
     Indication: Psoriasis
  10. DUTASTERIDE [Concomitant]
     Active Substance: DUTASTERIDE
     Indication: Benign prostatic hyperplasia
     Dosage: UNKNOWN
     Route: 065
  11. TAMSULOSIN [Concomitant]
     Active Substance: TAMSULOSIN
     Indication: Benign prostatic hyperplasia
     Dosage: UNKNOWN
     Route: 065
  12. HYDROCHLOROTHIAZIDE [Concomitant]
     Active Substance: HYDROCHLOROTHIAZIDE
     Indication: Hypertension
     Dosage: UNKNOWN
     Route: 065
  13. OLMESARTAN [Concomitant]
     Active Substance: OLMESARTAN
     Indication: Hypertension
     Dosage: UNKNOWN
     Route: 065

REACTIONS (6)
  - Psoriatic arthropathy [Recovering/Resolving]
  - Mycobacterium kansasii infection [Recovered/Resolved]
  - Drug ineffective [Unknown]
  - Haemoptysis [Unknown]
  - Skin lesion [Unknown]
  - Cough [Unknown]

NARRATIVE: CASE EVENT DATE: 20150101
